FAERS Safety Report 7530969-8 (Version None)
Quarter: 2011Q2

REPORT INFORMATION
  Report Type: 
  Country: None (occurrence: None)
  Receive Date: 20110531
  Receipt Date: 20110516
  Transmission Date: 20111010
  Serious: Yes (Hospitalization)
  Sender: FDA-Public Use
  Company Number: 2011MA005949

PATIENT
  Age: 62 Year
  Sex: Male

DRUGS (2)
  1. LITHIUM CARBONATE [Concomitant]
  2. CARBAMAZEPINE [Suspect]
     Indication: BIPOLAR DISORDER
     Dosage: 600 MG;OD;

REACTIONS (5)
  - ATAXIA [None]
  - BRADYKINESIA [None]
  - EXTRAPYRAMIDAL DISORDER [None]
  - TREMOR [None]
  - GAIT DISTURBANCE [None]
